FAERS Safety Report 9727661 (Version 3)
Quarter: 2014Q3

REPORT INFORMATION
  Report Type: Spontaneous
  Country: AR (occurrence: AR)
  Receive Date: 20131203
  Receipt Date: 20140829
  Transmission Date: 20150326
  Serious: Yes (Hospitalization, Other)
  Sender: FDA-Public Use
  Company Number: PHHY2013AR137965

PATIENT
  Sex: Male

DRUGS (5)
  1. TRILEPTAL [Suspect]
     Active Substance: OXCARBAZEPINE
     Indication: HEMIPLEGIA
     Dosage: 3 DF/DAY
     Route: 048
  2. TEGRETOL [Concomitant]
     Active Substance: CARBAMAZEPINE
     Dosage: UNK UKN, UNK
     Dates: end: 2008
  3. LIORESAL [Suspect]
     Active Substance: BACLOFEN
     Indication: HEMIPLEGIA
     Dosage: 4 DF, DAILY
     Route: 048
     Dates: start: 2008
  4. NEURIL//DIAZEPAM [Concomitant]
     Dosage: UNK UKN, UNK
  5. LIORESAL [Suspect]
     Active Substance: BACLOFEN
     Dosage: 3 DF,  DAILY
     Route: 048
     Dates: start: 201311

REACTIONS (9)
  - Depression [Recovering/Resolving]
  - General physical health deterioration [Unknown]
  - Motor dysfunction [Not Recovered/Not Resolved]
  - Muscle spasticity [Unknown]
  - Hemiplegia [Unknown]
  - Gastroenteritis [Recovered/Resolved]
  - Gastritis [Recovered/Resolved]
  - Gait disturbance [Not Recovered/Not Resolved]
  - Condition aggravated [Not Recovered/Not Resolved]

NARRATIVE: CASE EVENT DATE: 2012
